FAERS Safety Report 10159265 (Version 1)
Quarter: 2014Q2

REPORT INFORMATION
  Report Type: Spontaneous
  Country: ES (occurrence: ES)
  Receive Date: 20140508
  Receipt Date: 20140508
  Transmission Date: 20141212
  Serious: Yes (Other)
  Sender: FDA-Public Use
  Company Number: ES-JNJFOC-20140420912

PATIENT
  Age: 36 Year
  Sex: Female

DRUGS (3)
  1. TOPAMAX [Suspect]
     Indication: EPILEPSY
     Route: 048
     Dates: start: 20131014, end: 20131021
  2. VIMPAT [Concomitant]
     Indication: EPILEPSY
     Route: 048
  3. NOIAFREN [Concomitant]
     Indication: EPILEPSY
     Route: 048

REACTIONS (1)
  - Hypofibrinogenaemia [Recovered/Resolved]
